FAERS Safety Report 21566814 (Version 1)
Quarter: 2022Q4

REPORT INFORMATION
  Report Type: Spontaneous
  Country: US (occurrence: None)
  Receive Date: 20221107
  Receipt Date: 20221107
  Transmission Date: 20230113
  Serious: Yes (Other)
  Sender: FDA-Public Use
  Company Number: None

PATIENT
  Age: 69 Year
  Sex: Female
  Weight: 64.8 kg

DRUGS (8)
  1. NITROFURANTOIN MONOHYDRATE MACROCRYSTALS [Suspect]
     Active Substance: NITROFURANTOIN\NITROFURANTOIN MONOHYDRATE
     Indication: Urinary tract infection
     Dosage: OTHER QUANTITY : 1 CAPSULE(S);?FREQUENCY : TWICE A DAY;?
     Route: 048
     Dates: start: 20221026, end: 20221028
  2. MESALAMINE [Concomitant]
  3. RESTASIS [Concomitant]
  4. LOTEMAX [Concomitant]
  5. Omega 3 [Concomitant]
  6. FAMOTIDINE [Concomitant]
  7. FOLIC ACID [Concomitant]
     Active Substance: FOLIC ACID
  8. VITAMIN D NOS [Concomitant]
     Active Substance: VITAMIN D NOS

REACTIONS (7)
  - Nausea [None]
  - Pyrexia [None]
  - Asthenia [None]
  - Chills [None]
  - Tremor [None]
  - Chills [None]
  - Therapy interrupted [None]

NARRATIVE: CASE EVENT DATE: 20221026
